FAERS Safety Report 9894657 (Version 3)
Quarter: 2014Q1

REPORT INFORMATION
  Report Type: Report from Study
  Country: US (occurrence: US)
  Receive Date: 20140213
  Receipt Date: 20140228
  Transmission Date: 20141002
  Serious: Yes (Death, Hospitalization)
  Sender: FDA-Public Use
  Company Number: US-ABBVIE-14P-163-1197936-00

PATIENT
  Age: 61 Year
  Sex: Male
  Weight: 80.81 kg

DRUGS (21)
  1. HUMIRA [Suspect]
     Indication: PSORIASIS
     Route: 058
     Dates: start: 20131224, end: 20140109
  2. ALBUTEROL [Concomitant]
     Indication: ASTHMA
  3. ASPIRIN [Concomitant]
     Indication: PRODUCT USED FOR UNKNOWN INDICATION
  4. ATORVASTATIN [Concomitant]
     Indication: BLOOD CHOLESTEROL INCREASED
  5. BENZTROPINE [Concomitant]
     Indication: PRODUCT USED FOR UNKNOWN INDICATION
  6. SYMBICORT [Concomitant]
     Indication: ASTHMA
  7. CLOBETASOL [Concomitant]
     Indication: PSORIASIS
     Route: 061
  8. CYCLOBENZAPRINE [Concomitant]
     Indication: PRODUCT USED FOR UNKNOWN INDICATION
  9. VALIUM [Concomitant]
     Indication: ANXIETY
  10. NEXIUM [Concomitant]
     Indication: GASTROOESOPHAGEAL REFLUX DISEASE
  11. PROZAC [Concomitant]
     Indication: DEPRESSION
  12. PROZAC [Concomitant]
     Indication: ANXIETY
  13. FLONASE [Concomitant]
     Indication: PRODUCT USED FOR UNKNOWN INDICATION
  14. LASIX [Concomitant]
     Indication: PRODUCT USED FOR UNKNOWN INDICATION
  15. MIDODRINE [Concomitant]
     Indication: PRODUCT USED FOR UNKNOWN INDICATION
  16. MORPHINE [Concomitant]
     Indication: PRODUCT USED FOR UNKNOWN INDICATION
  17. PERCOCET [Concomitant]
     Indication: PRODUCT USED FOR UNKNOWN INDICATION
     Dosage: 10/325 MG, PRN
  18. DILANTIN [Concomitant]
     Indication: CONVULSION
  19. LYRICA [Concomitant]
     Indication: CONVULSION
     Dosage: PRN
  20. TRIAMCINOLONE [Concomitant]
     Indication: PSORIASIS
     Route: 061
  21. FOLIC ACID [Concomitant]
     Indication: VITAMIN SUPPLEMENTATION

REACTIONS (10)
  - Renal failure acute [Fatal]
  - Haematuria [Fatal]
  - Mental impairment [Unknown]
  - Thrombosis [Unknown]
  - Sepsis [Unknown]
  - Blood urine [Unknown]
  - Pyrexia [Unknown]
  - Local swelling [Unknown]
  - Skin discolouration [Unknown]
  - Endotracheal intubation [Unknown]
